FAERS Safety Report 8249141-1 (Version None)
Quarter: 2012Q2

REPORT INFORMATION
  Report Type: 
  Country: None (occurrence: None)
  Receive Date: 20120402
  Receipt Date: 20120327
  Transmission Date: 20120825
  Serious: No
  Sender: FDA-Public Use
  Company Number: US-PFIZER INC-2012078851

PATIENT
  Sex: Female
  Weight: 76.644 kg

DRUGS (5)
  1. VIAGRA [Interacting]
     Indication: OFF LABEL USE
  2. VIAGRA [Suspect]
     Indication: OESOPHAGEAL SPASM
     Dosage: 50 MG, 1X/DAY
     Route: 048
     Dates: start: 20120324
  3. BOTULINUM TOXIN TYPE A [Interacting]
     Indication: MEIGE'S SYNDROME
     Dosage: UNK
  4. QVAR 40 [Concomitant]
     Indication: ASTHMA
     Dosage: UNK
  5. METFORMIN [Concomitant]
     Indication: POLYCYSTIC OVARIES
     Dosage: UNK

REACTIONS (4)
  - THERAPEUTIC RESPONSE UNEXPECTED [None]
  - DRUG INTERACTION [None]
  - PAIN IN EXTREMITY [None]
  - HEADACHE [None]
